FAERS Safety Report 14283081 (Version 1)
Quarter: 2017Q4

REPORT INFORMATION
  Report Type: Spontaneous
  Country: CH (occurrence: CH)
  Receive Date: 20171213
  Receipt Date: 20171213
  Transmission Date: 20180321
  Serious: Yes (Other)
  Sender: FDA-Public Use
  Company Number: CH-TEVA-2017-CH-830723

PATIENT
  Age: 22 Year
  Sex: Male
  Weight: 90 kg

DRUGS (3)
  1. INDAPAMIDA MEPHA [Concomitant]
     Route: 048
     Dates: start: 20141112
  2. ISOTRETINOIN MEPHA [Suspect]
     Active Substance: ISOTRETINOIN
     Indication: ACNE
     Dosage: 20 MILLIGRAM DAILY;
     Route: 048
     Dates: start: 20170630, end: 20171112
  3. EXFORGE [Concomitant]
     Active Substance: AMLODIPINE BESYLATE\VALSARTAN
     Indication: HYPERTENSION
     Dosage: 1 DOSAGE FORMS DAILY; 1 DF DOSAGE FROM: 160MG VALSARTAN, 5MG AMLODIPIN
     Route: 048
     Dates: start: 20141107

REACTIONS (2)
  - Gingivitis [Unknown]
  - General physical health deterioration [Unknown]

NARRATIVE: CASE EVENT DATE: 20171112
